FAERS Safety Report 13118633 (Version 1)
Quarter: 2017Q1

REPORT INFORMATION
  Report Type: Other
  Country: US (occurrence: US)
  Receive Date: 20170116
  Receipt Date: 20170116
  Transmission Date: 20170428
  Serious: Yes (Death, Hospitalization)
  Sender: FDA-Public Use
  Company Number: US-LEHIGH_VALLEY-USA-POI0580201700067

PATIENT
  Age: 78 Year
  Sex: Female

DRUGS (8)
  1. AMLODIPINE [Suspect]
     Active Substance: AMLODIPINE BESYLATE
     Dates: end: 2015
  2. BUSPIRONE [Suspect]
     Active Substance: BUSPIRONE HYDROCHLORIDE
     Dates: end: 2015
  3. LEVOLET (LEVOTHYROXINE) [Suspect]
     Active Substance: LEVOTHYROXINE
     Dates: end: 2015
  4. OLANZAPINE. [Suspect]
     Active Substance: OLANZAPINE
     Dates: end: 2015
  5. LISINOPRIL. [Suspect]
     Active Substance: LISINOPRIL
     Dates: end: 2015
  6. SERTRALINE [Suspect]
     Active Substance: SERTRALINE HYDROCHLORIDE
     Dates: end: 2015
  7. TRANYLCYPROMINE [Suspect]
     Active Substance: TRANYLCYPROMINE
     Dates: end: 2015
  8. HYDROXYCHLOROQUINE [Suspect]
     Active Substance: HYDROXYCHLOROQUINE
     Dates: end: 2015

REACTIONS (15)
  - Acidosis [None]
  - Myoclonus [None]
  - Extensor plantar response [None]
  - Blood pressure systolic increased [None]
  - Body temperature decreased [None]
  - Blood potassium increased [None]
  - Serotonin syndrome [None]
  - Hyperthermia [None]
  - Completed suicide [Fatal]
  - Rhabdomyolysis [Fatal]
  - Respiratory arrest [Fatal]
  - Bundle branch block [None]
  - Muscle twitching [None]
  - Gastrointestinal sounds abnormal [None]
  - Intentional overdose [Fatal]

NARRATIVE: CASE EVENT DATE: 2015
